FAERS Safety Report 25977911 (Version 1)
Quarter: 2025Q4

REPORT INFORMATION
  Report Type: Spontaneous
  Country: US (occurrence: US)
  Receive Date: 20251030
  Receipt Date: 20251030
  Transmission Date: 20260117
  Serious: Yes (Other)
  Sender: EDENBRIDGE PHARMACEUTICALS
  Company Number: US-EDENBRIDGE PHARMACEUTICALS, LLC-US-2024EDE000027

PATIENT
  Sex: Male

DRUGS (1)
  1. IVERMECTIN [Suspect]
     Active Substance: IVERMECTIN
     Indication: Scabies
     Dosage: 4 DOSAGE FORM, SINGLE
     Route: 048

REACTIONS (4)
  - Heart rate abnormal [Unknown]
  - Vital functions abnormal [Unknown]
  - Unevaluable event [Unknown]
  - Off label use [Unknown]
